FAERS Safety Report 5717781-7 (Version None)
Quarter: 2008Q3

REPORT INFORMATION
  Report Type: 
  Country: None (occurrence: None)
  Receive Date: 20080425
  Receipt Date: 20080415
  Transmission Date: 20090109
  Serious: Yes (Hospitalization, Disabling, Other)
  Sender: FDA-Public Use
  Company Number: US-AMGEN-KDL242521

PATIENT
  Sex: Male
  Weight: 72.6 kg

DRUGS (7)
  1. ENBREL [Suspect]
     Indication: PSORIASIS
     Route: 058
     Dates: start: 20040101
  2. UNSPECIFIED TOPICAL PRODUCT [Concomitant]
     Route: 061
  3. DERMA-SMOOTHE/FS [Concomitant]
  4. CLOBETASOL PROPIONATE [Concomitant]
  5. DOVONEX [Concomitant]
  6. KETOCONAZOLE [Concomitant]
     Route: 061
  7. VITAMINS [Concomitant]

REACTIONS (10)
  - ABDOMINAL DISTENSION [None]
  - ABDOMINAL PAIN [None]
  - ASPARTATE AMINOTRANSFERASE INCREASED [None]
  - ATAXIA [None]
  - CEREBRAL ATROPHY [None]
  - COUGH [None]
  - GAMMA-GLUTAMYLTRANSFERASE INCREASED [None]
  - HEADACHE [None]
  - NEUROPATHY PERIPHERAL [None]
  - TALIPES [None]
